FAERS Safety Report 15196144 (Version 1)
Quarter: 2018Q3

REPORT INFORMATION
  Report Type: Spontaneous
  Country: US (occurrence: US)
  Receive Date: 20180626
  Receipt Date: 20180626
  Transmission Date: 20181010
  Serious: No
  Sender: FDA-Public Use
  Company Number: None

PATIENT
  Age: 60 Year
  Sex: Female
  Weight: 78.75 kg

DRUGS (4)
  1. KRILL OIL [Concomitant]
     Active Substance: DIETARY SUPPLEMENT
  2. FLUTICASONE PROPIONATE 50MCG [Suspect]
     Active Substance: FLUTICASONE PROPIONATE
     Indication: MULTIPLE ALLERGIES
     Dosage: ?          OTHER STRENGTH:MCG;QUANTITY:16 SPRAY(S);?
     Route: 055
     Dates: start: 20180424, end: 20180612
  3. OMEPRAZOLE. [Concomitant]
     Active Substance: OMEPRAZOLE
  4. CITERIZINE [Concomitant]

REACTIONS (5)
  - Pain [None]
  - Epistaxis [None]
  - Nasal dryness [None]
  - Pruritus [None]
  - Rhinorrhoea [None]

NARRATIVE: CASE EVENT DATE: 20180430
